FAERS Safety Report 13516738 (Version 3)
Quarter: 2019Q3

REPORT INFORMATION
  Report Type: Spontaneous
  Country: US (occurrence: US)
  Receive Date: 20170505
  Receipt Date: 20190820
  Transmission Date: 20191004
  Serious: Yes (Other)
  Sender: FDA-Public Use
  Company Number: US-TEVA-765374ACC

PATIENT
  Age: 29 Year
  Sex: Female
  Weight: 88.98 kg

DRUGS (1)
  1. PARAGARD T 380A [Suspect]
     Active Substance: COPPER
     Indication: CONTRACEPTION
     Dates: start: 20161116

REACTIONS (5)
  - Pregnancy on contraceptive [Unknown]
  - Device expulsion [Recovered/Resolved]
  - Abortion spontaneous [Unknown]
  - Breast tenderness [Recovered/Resolved]
  - Maternal exposure during pregnancy [Unknown]

NARRATIVE: CASE EVENT DATE: 201701
